FAERS Safety Report 8534299 (Version 4)
Quarter: 2012Q4

REPORT INFORMATION
  Report Type: Report from Study
  Country: US (occurrence: US)
  Receive Date: 20120427
  Receipt Date: 20120915
  Transmission Date: 20130627
  Serious: Yes (Hospitalization, Other)
  Sender: FDA-Public Use
  Company Number: US-ABBOTT-12P-163-0927650-00

PATIENT
  Age: 59 Year
  Sex: Female

DRUGS (18)
  1. HUMIRA 40 MG/0.8 ML PEN [Suspect]
     Indication: PSORIASIS
     Dates: start: 20110510, end: 20120403
  2. HUMIRA 40 MG/0.8 ML PEN [Suspect]
     Dates: start: 20120528, end: 20120528
  3. HUMIRA 40 MG/0.8 ML PEN [Suspect]
     Dates: start: 20120322, end: 20120501
  4. PREDNISONE [Suspect]
     Indication: PNEUMONIA
     Dates: start: 201204
  5. DEPAKOTE [Concomitant]
     Indication: BIPOLAR DISORDER
     Route: 048
  6. GEODON [Concomitant]
     Indication: BIPOLAR DISORDER
     Dosage: 80 mg daily
     Route: 048
  7. SEROQUEL [Concomitant]
     Indication: BIPOLAR DISORDER
     Dosage: 600 mg daily
     Route: 048
  8. SEROQUEL [Concomitant]
  9. RESTORIL [Concomitant]
     Indication: INSOMNIA
     Dosage: 2-3 tabs daily
     Route: 048
  10. DILTIAZEM [Concomitant]
     Indication: HEART RATE INCREASED
     Route: 048
  11. DILTIAZEM [Concomitant]
     Dates: start: 20120524
  12. ACYCLOVIR [Concomitant]
     Indication: HERPES VIRUS INFECTION
     Route: 048
  13. PRAVASTATIN [Concomitant]
     Indication: BLOOD CHOLESTEROL INCREASED
     Dosage: 40 mg daily
     Route: 048
     Dates: start: 201204
  14. SIMVASTATIN [Concomitant]
     Indication: BLOOD CHOLESTEROL INCREASED
     Dates: end: 201204
  15. LISINOPRIL [Concomitant]
     Indication: PRODUCT USED FOR UNKNOWN INDICATION
     Dates: end: 201204
  16. REMICADE [Concomitant]
     Indication: PRODUCT USED FOR UNKNOWN INDICATION
  17. METHOTREXATE [Concomitant]
     Indication: PRODUCT USED FOR UNKNOWN INDICATION
  18. UNKNOWN TOPICAL STEROID [Concomitant]
     Route: 061

REACTIONS (25)
  - Sleep apnoea syndrome [Unknown]
  - Pneumonia [Recovered/Resolved]
  - Basal cell carcinoma [Recovered/Resolved]
  - Basal cell carcinoma [Recovered/Resolved]
  - Basal cell carcinoma [Recovered/Resolved]
  - Blood glucose increased [Recovered/Resolved]
  - Basal cell carcinoma [Unknown]
  - Pericardial effusion [Unknown]
  - Pleural effusion [Unknown]
  - Pneumonia [Unknown]
  - Pneumonia [Unknown]
  - Pneumonia [Unknown]
  - Chronic obstructive pulmonary disease [Unknown]
  - Chills [Unknown]
  - Pyrexia [Unknown]
  - Pulmonary oedema [Unknown]
  - Blood triglycerides increased [Unknown]
  - Systemic lupus erythematosus [Unknown]
  - Antibody test abnormal [Unknown]
  - Blood triglycerides increased [Unknown]
  - Somnolence [Unknown]
  - Drug effect decreased [Unknown]
  - Psoriasis [Unknown]
  - Respiratory tract congestion [Unknown]
  - Psoriasis [Unknown]
